FAERS Safety Report 8968998 (Version 1)
Quarter: 2012Q4

REPORT INFORMATION
  Report Type: 
  Country: PR (occurrence: PR)
  Receive Date: 20121218
  Receipt Date: 20121218
  Transmission Date: 20130627
  Serious: No
  Sender: FDA-Public Use
  Company Number: PR-BRISTOL-MYERS SQUIBB COMPANY-16343196

PATIENT
  Sex: Female

DRUGS (1)
  1. ABILIFY TABS 10 MG [Suspect]
     Dosage: Abilify 10 mg disintegrating tablets

REACTIONS (2)
  - Drug administration error [Unknown]
  - Mouth injury [Unknown]
